FAERS Safety Report 5075162-6 (Version None)
Quarter: 2006Q3

REPORT INFORMATION
  Report Type: 
  Country: None (occurrence: None)
  Receive Date: 20060807
  Receipt Date: 20060807
  Transmission Date: 20061208
  Serious: Yes (Other)
  Sender: FDA-Public Use
  Company Number: None

PATIENT
  Age: 34 Year
  Sex: Male
  Weight: 117.9352 kg

DRUGS (2)
  1. GEODON [Suspect]
     Indication: SCHIZOPHRENIA
     Dosage: 30 TO 60 MG PILL  4 TO 6 DAYS
  2. ZYPREXA [Suspect]

REACTIONS (3)
  - CLAUSTROPHOBIA [None]
  - DRUG PRESCRIBING ERROR [None]
  - FEELING HOT [None]
